FAERS Safety Report 9818227 (Version 1)
Quarter: 2014Q1

REPORT INFORMATION
  Report Type: Spontaneous
  Country: US (occurrence: None)
  Receive Date: 20140113
  Receipt Date: 20140113
  Transmission Date: 20141002
  Serious: Yes (Hospitalization)
  Sender: FDA-Public Use
  Company Number: None

PATIENT
  Age: 59 Year
  Sex: Female
  Weight: 69 kg

DRUGS (2)
  1. PACLITAXEL (TAXOL) [Suspect]
  2. TOPOTECAN [Suspect]

REACTIONS (3)
  - Neutropenia [None]
  - Leukopenia [None]
  - Pulmonary embolism [None]
